FAERS Safety Report 5073260-4 (Version None)
Quarter: 2006Q3

REPORT INFORMATION
  Report Type: 
  Country: None (occurrence: None)
  Receive Date: 20060802
  Receipt Date: 20060720
  Transmission Date: 20061208
  Serious: Yes (Hospitalization, Disabling, Other)
  Sender: FDA-Public Use
  Company Number: 2006048489

PATIENT
  Age: 59 Year
  Sex: Female
  Weight: 81.6475 kg

DRUGS (1)
  1. BEXTRA [Suspect]
     Indication: OSTEOARTHRITIS
     Dosage: ORAL
     Route: 048
     Dates: start: 20020512

REACTIONS (1)
  - THROMBOEMBOLIC STROKE [None]
